FAERS Safety Report 16463029 (Version 1)
Quarter: 2019Q2

REPORT INFORMATION
  Report Type: Spontaneous
  Country: US (occurrence: US)
  Receive Date: 20190621
  Receipt Date: 20190621
  Transmission Date: 20190711
  Serious: No
  Sender: FDA-Public Use
  Company Number: US-ASTRAZENECA-2019SE86527

PATIENT
  Age: 77 Year
  Sex: Female

DRUGS (2)
  1. FARXIGA [Suspect]
     Active Substance: DAPAGLIFLOZIN PROPANEDIOL
     Route: 048
     Dates: start: 201904
  2. INSULIN [Concomitant]
     Active Substance: INSULIN NOS
     Dosage: AT NIGHT

REACTIONS (4)
  - Dyspnoea [Unknown]
  - Nervousness [Unknown]
  - Agitation [Unknown]
  - Pain [Unknown]
